FAERS Safety Report 9630484 (Version 1)
Quarter: 2013Q4

REPORT INFORMATION
  Report Type: Spontaneous
  Country: SI (occurrence: SI)
  Receive Date: 20131018
  Receipt Date: 20131018
  Transmission Date: 20140711
  Serious: Yes (Other)
  Sender: FDA-Public Use
  Company Number: SI-ROCHE-1287648

PATIENT
  Age: 80 Year
  Sex: Female

DRUGS (9)
  1. MABTHERA [Suspect]
     Indication: LYMPHOMA
     Dosage: 600 MG IN TOTAL, CONCENTRATE FOR SOLUTION FOR INFUSION
     Route: 042
     Dates: start: 20130910, end: 20130910
  2. MABTHERA [Suspect]
     Indication: LYMPHOMA
     Dosage: 600 MG IN TOTAL
     Route: 042
     Dates: start: 20130910, end: 20130910
  3. NOLPAZA [Concomitant]
     Route: 065
  4. ALLOPURINOL [Concomitant]
     Route: 065
  5. EDEMID [Concomitant]
     Dosage: 1/2 TBL.
     Route: 065
  6. LANITOP [Concomitant]
     Dosage: 1/2 TBL.
     Route: 065
  7. TRITACE [Concomitant]
     Route: 065
  8. ASPIRIN PROTECT 100 [Concomitant]
     Route: 065
  9. LEGOFER [Concomitant]
     Dosage: 2X1, FORM:SYRUP
     Route: 065

REACTIONS (4)
  - Infusion related reaction [Recovered/Resolved]
  - Body temperature increased [Recovered/Resolved]
  - Chills [Recovered/Resolved]
  - Oxygen saturation decreased [Recovered/Resolved]
